FAERS Safety Report 24575758 (Version 1)
Quarter: 2024Q4

REPORT INFORMATION
  Report Type: Report from Study
  Country: UY (occurrence: UY)
  Receive Date: 20241104
  Receipt Date: 20241104
  Transmission Date: 20250114
  Serious: Yes (Hospitalization, Other)
  Sender: ABBVIE
  Company Number: UY-ABBVIE-5984249

PATIENT
  Sex: Female

DRUGS (1)
  1. RINVOQ [Suspect]
     Active Substance: UPADACITINIB
     Route: 048
     Dates: start: 20201016

REACTIONS (4)
  - Blindness transient [Unknown]
  - Optic ischaemic neuropathy [Unknown]
  - Inflammation [Unknown]
  - Visual impairment [Unknown]
